FAERS Safety Report 14081310 (Version 2)
Quarter: 2017Q4

REPORT INFORMATION
  Report Type: Spontaneous
  Country: GB (occurrence: GB)
  Receive Date: 20171012
  Receipt Date: 20171018
  Transmission Date: 20180321
  Serious: Yes (Disabling)
  Sender: FDA-Public Use
  Company Number: GB-ABBVIE-17P-167-2129670-00

PATIENT
  Age: 23 Month
  Sex: Male

DRUGS (1)
  1. SODIUM VALPROATE [Suspect]
     Active Substance: VALPROATE SODIUM
     Indication: SEIZURE
     Route: 065
     Dates: start: 19941106, end: 19960705

REACTIONS (4)
  - Off label use [Unknown]
  - Autism spectrum disorder [Not Recovered/Not Resolved]
  - Aphasia [Recovered/Resolved with Sequelae]
  - Intellectual disability [Unknown]
